FAERS Safety Report 5889270-0 (Version None)
Quarter: 2008Q3

REPORT INFORMATION
  Report Type: 
  Country: None (occurrence: None)
  Receive Date: 20080919
  Receipt Date: 20080908
  Transmission Date: 20090109
  Serious: Yes (Other)
  Sender: FDA-Public Use
  Company Number: AU-ROCHE-585180

PATIENT

DRUGS (2)
  1. ROACCUTANE [Suspect]
     Indication: ACNE
     Dosage: TAKEN FOR THREE MONTHS
     Route: 065
     Dates: start: 20070101
  2. ROACCUTANE [Suspect]
     Dosage: TAKEN FOR FIVE MONTHS
     Route: 065
     Dates: end: 20080101

REACTIONS (5)
  - DEPRESSION [None]
  - ILL-DEFINED DISORDER [None]
  - SUICIDE ATTEMPT [None]
  - VISUAL ACUITY REDUCED [None]
  - VISUAL IMPAIRMENT [None]
